FAERS Safety Report 19009907 (Version 1)
Quarter: 2021Q1

REPORT INFORMATION
  Report Type: Spontaneous
  Country: SA (occurrence: SA)
  Receive Date: 20210315
  Receipt Date: 20210315
  Transmission Date: 20210420
  Serious: Yes (Other)
  Sender: FDA-Public Use
  Company Number: SA-TEVA-2021-SA-1891425

PATIENT
  Age: 27 Year
  Sex: Female

DRUGS (2)
  1. CYCLOGEST (PROGESTERONE)(400MILIGRAM, PESSARY) [Suspect]
     Active Substance: PROGESTERONE
     Indication: PREMATURE LABOUR
     Dosage: 2 DOSAGE FORMS DAILY; (1 DOSAGE FORMS,2 IN 1 D)
     Route: 067
     Dates: start: 20201027, end: 20210218
  2. DUPHASTON [Suspect]
     Active Substance: DYDROGESTERONE
     Indication: PRODUCT USED FOR UNKNOWN INDICATION
     Dosage: 10 MILLIGRAM DAILY; GESTATIONAL WEEK 1 ? GESTATIONAL WEEK 16

REACTIONS (2)
  - Off label use [Unknown]
  - Abortion spontaneous [Not Recovered/Not Resolved]

NARRATIVE: CASE EVENT DATE: 20201027
